FAERS Safety Report 7020960-2 (Version None)
Quarter: 2010Q3

REPORT INFORMATION
  Report Type: 
  Country: None (occurrence: None)
  Receive Date: 20100929
  Receipt Date: 20100104
  Transmission Date: 20110219
  Serious: No
  Sender: FDA-Public Use
  Company Number: A0836282A

PATIENT
  Age: 7 Year
  Sex: Female
  Weight: 42.7 kg

DRUGS (2)
  1. RELENZA [Suspect]
     Dosage: 10MG UNKNOWN
     Route: 055
     Dates: start: 20090901, end: 20090902
  2. ZYRTEC [Concomitant]
     Route: 048

REACTIONS (1)
  - CHEST PAIN [None]
